FAERS Safety Report 8449855-4 (Version None)
Quarter: 2012Q2

REPORT INFORMATION
  Report Type: 
  Country: None (occurrence: None)
  Receive Date: 20120620
  Receipt Date: 20120610
  Transmission Date: 20120825
  Serious: Yes (Other)
  Sender: FDA-Public Use
  Company Number: IL-JNJFOC-20110710749

PATIENT
  Age: 28 Year
  Sex: Male

DRUGS (2)
  1. REMICADE [Suspect]
     Indication: CROHN'S DISEASE
     Dosage: 3RD OR 4TH INFUSION
     Route: 042
  2. REMICADE [Suspect]
     Route: 042

REACTIONS (4)
  - SURGERY [None]
  - INFUSION RELATED REACTION [None]
  - SYNCOPE [None]
  - INCORRECT DRUG ADMINISTRATION RATE [None]
